FAERS Safety Report 25094760 (Version 1)
Quarter: 2025Q1

REPORT INFORMATION
  Report Type: Spontaneous
  Country: US (occurrence: None)
  Receive Date: 20250318
  Receipt Date: 20250318
  Transmission Date: 20250409
  Serious: Yes (Hospitalization)
  Sender: FDA-CTU
  Company Number: None

PATIENT
  Age: 87 Year
  Sex: Female
  Weight: 50 kg

DRUGS (1)
  1. CAPIVASERTIB [Suspect]
     Active Substance: CAPIVASERTIB
     Dosage: FREQUENCY : TWICE A DAY;?
     Route: 048
     Dates: start: 20250303, end: 20250313

REACTIONS (7)
  - Diabetic ketoacidosis [None]
  - Hypotension [None]
  - Tachycardia [None]
  - Acute kidney injury [None]
  - Dehydration [None]
  - Hypovolaemia [None]
  - Malignant neoplasm progression [None]

NARRATIVE: CASE EVENT DATE: 20250313
